FAERS Safety Report 5894238-4 (Version None)
Quarter: 2008Q3

REPORT INFORMATION
  Report Type: 
  Country: None (occurrence: None)
  Receive Date: 20080923
  Receipt Date: 20080305
  Transmission Date: 20090109
  Serious: No
  Sender: FDA-Public Use
  Company Number: US-ASTRAZENECA-2008UW04511

PATIENT
  Age: 39 Year
  Weight: 90.7 kg

DRUGS (6)
  1. SEROQUEL [Suspect]
     Route: 048
  2. DOXEPIN HCL [Concomitant]
  3. VICODIN [Concomitant]
  4. SOMA [Concomitant]
  5. TRAZODONE HCL [Concomitant]
  6. GEODON [Concomitant]

REACTIONS (4)
  - ABDOMINAL DISTENSION [None]
  - DYSARTHRIA [None]
  - FOOD CRAVING [None]
  - WEIGHT INCREASED [None]
